FAERS Safety Report 15618429 (Version 1)
Quarter: 2018Q4

REPORT INFORMATION
  Report Type: Spontaneous
  Country: TR (occurrence: TR)
  Receive Date: 20181114
  Receipt Date: 20181114
  Transmission Date: 20190205
  Serious: Yes (Other)
  Sender: FDA-Public Use
  Company Number: TR-CASPER PHARMA LLC-2018CAS000308

PATIENT
  Age: 18 Month
  Sex: Male
  Weight: 12 kg

DRUGS (2)
  1. GLYCOPYRROLATE. [Suspect]
     Active Substance: GLYCOPYRROLATE
     Indication: NEUROMUSCULAR BLOCKADE REVERSAL
     Dosage: 0.015 MILLIGRAM/KILOGRAM
     Route: 065
  2. NEOSTIGMINE. [Suspect]
     Active Substance: NEOSTIGMINE METHYLSULFATE
     Indication: NEUROMUSCULAR BLOCKADE REVERSAL
     Dosage: 0.04 MILLIGRAM/KILOGRAM
     Route: 042

REACTIONS (3)
  - Bradycardia [Recovered/Resolved]
  - Product use in unapproved indication [Unknown]
  - Cardiac arrest [Recovered/Resolved]
